FAERS Safety Report 13371368 (Version 1)
Quarter: 2017Q1

REPORT INFORMATION
  Report Type: Spontaneous
  Country: DE (occurrence: DE)
  Receive Date: 20170324
  Receipt Date: 20170324
  Transmission Date: 20170429
  Serious: Yes (Hospitalization, Other)
  Sender: FDA-Public Use
  Company Number: DE-GLAXOSMITHKLINE-DE2017GSK041148

PATIENT
  Age: 58 Year
  Sex: Female

DRUGS (7)
  1. TEPILTA [Concomitant]
     Active Substance: ALUMINUM HYDROXIDE\MAGNESIUM OXIDE\OXETHAZAINE
  2. HERCEPTIN [Suspect]
     Active Substance: TRASTUZUMAB
     Indication: PRODUCT USED FOR UNKNOWN INDICATION
     Route: 042
  3. METOCLOPRAMIDE. [Concomitant]
     Active Substance: METOCLOPRAMIDE
  4. ZOMETA [Suspect]
     Active Substance: ZOLEDRONIC ACID
     Indication: PRODUCT USED FOR UNKNOWN INDICATION
     Dosage: 4 MG/5 ML
  5. METAMIZOLE SODIUM [Concomitant]
     Active Substance: METAMIZOLE SODIUM
  6. DICLOFENAC SODIUM. [Suspect]
     Active Substance: DICLOFENAC SODIUM
     Indication: PRODUCT USED FOR UNKNOWN INDICATION
     Dosage: UNK, OCCASIONALLY
     Route: 048
  7. IBUPROFEN. [Suspect]
     Active Substance: IBUPROFEN
     Indication: PRODUCT USED FOR UNKNOWN INDICATION
     Dosage: UNK, OCASSIONALLY

REACTIONS (23)
  - Drug-induced liver injury [Recovering/Resolving]
  - Blood alkaline phosphatase increased [Recovering/Resolving]
  - Renal function test abnormal [Recovering/Resolving]
  - Diarrhoea [Recovering/Resolving]
  - Leukocytosis [Recovering/Resolving]
  - Hypokalaemia [Recovering/Resolving]
  - Urinary sediment present [Recovering/Resolving]
  - Fatigue [Recovering/Resolving]
  - Glomerular filtration rate abnormal [Recovering/Resolving]
  - Bacterial test positive [Recovering/Resolving]
  - Jaundice [Recovering/Resolving]
  - Nausea [Recovering/Resolving]
  - Blood bilirubin increased [Recovering/Resolving]
  - Gamma-glutamyltransferase increased [Recovering/Resolving]
  - Vomiting [Recovering/Resolving]
  - Prothrombin time shortened [Recovering/Resolving]
  - Hepatic function abnormal [Recovering/Resolving]
  - C-reactive protein increased [Recovering/Resolving]
  - White blood cells urine positive [Recovering/Resolving]
  - Faeces discoloured [Recovering/Resolving]
  - Aspartate aminotransferase increased [Recovering/Resolving]
  - Pruritus [Recovering/Resolving]
  - Blood creatinine abnormal [Recovering/Resolving]
